FAERS Safety Report 13155423 (Version 1)
Quarter: 2017Q1

REPORT INFORMATION
  Report Type: Report from Study
  Country: US (occurrence: US)
  Receive Date: 20170126
  Receipt Date: 20170126
  Transmission Date: 20170428
  Serious: Yes (Other)
  Sender: FDA-Public Use
  Company Number: US-TAKEDA-2017TUS001603

PATIENT
  Age: 62 Year
  Sex: Male
  Weight: 90.7 kg

DRUGS (1)
  1. VEDOLIZUMAB [Suspect]
     Active Substance: VEDOLIZUMAB
     Indication: CROHN^S DISEASE
     Dosage: 300 MG, UNK
     Route: 042

REACTIONS (8)
  - Renal pain [Recovered/Resolved]
  - Back pain [Recovered/Resolved]
  - Hypoaesthesia [Not Recovered/Not Resolved]
  - Frequent bowel movements [Unknown]
  - Hypoaesthesia [Recovered/Resolved]
  - Haematochezia [Unknown]
  - Pain in extremity [Recovered/Resolved]
  - Arthralgia [Recovered/Resolved]

NARRATIVE: CASE EVENT DATE: 20170102
